FAERS Safety Report 15123091 (Version 7)
Quarter: 2019Q4

REPORT INFORMATION
  Report Type: Spontaneous
  Country: US (occurrence: US)
  Receive Date: 20180709
  Receipt Date: 20191227
  Transmission Date: 20200122
  Serious: No
  Sender: FDA-Public Use
  Company Number: US-ACTELION-A-NJ2018-175086

PATIENT
  Sex: Female
  Weight: 94.33 kg

DRUGS (5)
  1. OPSUMIT [Suspect]
     Active Substance: MACITENTAN
     Indication: PULMONARY ARTERIAL HYPERTENSION
     Dosage: 10 MG, QD
     Route: 048
  2. SILDENAFIL. [Concomitant]
     Active Substance: SILDENAFIL
     Indication: PULMONARY ARTERIAL HYPERTENSION
  3. HYDROGEN PEROXIDE BELL [Concomitant]
  4. REMODULIN [Concomitant]
     Active Substance: TREPROSTINIL
  5. OXYGEN. [Concomitant]
     Active Substance: OXYGEN

REACTIONS (10)
  - Catheter management [Unknown]
  - Infection [Unknown]
  - Localised infection [Unknown]
  - Infusion site infection [Unknown]
  - Infusion site haemorrhage [Unknown]
  - Infusion site discharge [Unknown]
  - Nasopharyngitis [Unknown]
  - Infusion site pruritus [Unknown]
  - Infusion site mass [Unknown]
  - Dyspnoea [Unknown]
